FAERS Safety Report 8048868-4 (Version None)
Quarter: 2012Q1

REPORT INFORMATION
  Report Type: 
  Country: None (occurrence: None)
  Receive Date: 20120117
  Receipt Date: 20120110
  Transmission Date: 20120608
  Serious: Yes (Other)
  Sender: FDA-Public Use
  Company Number: NL-UCBSA-049463

PATIENT
  Age: 8 Year
  Sex: Female

DRUGS (5)
  1. KEPPRA [Suspect]
     Indication: EPILEPSY
     Dosage: APPROX. 50MG/KG/DAY
     Dates: start: 20100901
  2. LAMICTAL [Concomitant]
     Indication: EPILEPSY
     Dosage: DOSE INCREASED
     Route: 048
     Dates: start: 20070301
  3. LAMICTAL [Concomitant]
     Dosage: 200 MG PER DAY
     Route: 048
     Dates: start: 20090601
  4. DIPIPERON [Concomitant]
     Indication: PSYCHOTIC DISORDER
  5. KEPPRA [Suspect]
     Dosage: UNKNOWN DOSE
     Dates: start: 20090901

REACTIONS (3)
  - ABNORMAL BEHAVIOUR [None]
  - OBSESSIVE THOUGHTS [None]
  - INTENTIONAL SELF-INJURY [None]
